FAERS Safety Report 6196912-1 (Version None)
Quarter: 2009Q2

REPORT INFORMATION
  Report Type: 
  Country: None (occurrence: None)
  Receive Date: 20090518
  Receipt Date: 20090518
  Transmission Date: 20091009
  Serious: No
  Sender: FDA-Public Use
  Company Number: None

PATIENT
  Sex: Female

DRUGS (1)
  1. TOPAMAX [Suspect]
     Indication: EPILEPSY
     Dosage: 200 MG DAILY ONCE BID

REACTIONS (2)
  - PRODUCT SUBSTITUTION ISSUE [None]
  - UNEVALUABLE EVENT [None]
